FAERS Safety Report 5151713-8 (Version None)
Quarter: 2006Q4

REPORT INFORMATION
  Report Type: 
  Country: None (occurrence: None)
  Receive Date: 20061115
  Receipt Date: 20061108
  Transmission Date: 20070319
  Serious: Yes (Hospitalization)
  Sender: FDA-Public Use
  Company Number: AU-BRISTOL-MYERS SQUIBB COMPANY-13570197

PATIENT
  Age: 66 Year
  Sex: Male

DRUGS (7)
  1. REYATAZ [Suspect]
     Route: 048
     Dates: start: 20050622, end: 20050712
  2. RITONAVIR [Suspect]
     Route: 048
     Dates: start: 20050622, end: 20050712
  3. PENTAMIDINE ISETHIONATE [Concomitant]
  4. METOCLOPRAMIDE HCL [Concomitant]
  5. TENOFOVIR DISOPROXIL FUMARATE [Concomitant]
  6. LAMIVUDINE [Concomitant]
  7. MIRTAZAPINE [Concomitant]

REACTIONS (5)
  - ABDOMINAL PAIN [None]
  - JAUNDICE [None]
  - MALAISE [None]
  - NAUSEA [None]
  - PYREXIA [None]
